FAERS Safety Report 9412369 (Version 1)
Quarter: 2013Q3

REPORT INFORMATION
  Report Type: Spontaneous
  Country: US (occurrence: US)
  Receive Date: 20130722
  Receipt Date: 20130722
  Transmission Date: 20140515
  Serious: No
  Sender: FDA-Public Use
  Company Number: US-UPSHER-SMITH LABORATORIES, INC.-13002448

PATIENT
  Age: 77 Year
  Sex: Male

DRUGS (8)
  1. JANTOVEN [Suspect]
     Indication: IMPLANTABLE DEFIBRILLATOR INSERTION
     Dosage: 5 MG, QD
     Route: 048
     Dates: start: 201301, end: 20130713
  2. JANTOVEN [Suspect]
     Dosage: 7.5 MG, QD
     Route: 048
     Dates: start: 20130714
  3. PLAVIX                             /01220701/ [Concomitant]
     Dosage: UNK
  4. LIPITOR [Concomitant]
     Dosage: UNK
  5. LISINOPRIL [Concomitant]
     Dosage: UNK
  6. COREG [Concomitant]
     Dosage: UNK
  7. AMBIEN [Concomitant]
     Dosage: UNK
  8. ASPIRIN [Concomitant]
     Dosage: UNK

REACTIONS (2)
  - International normalised ratio decreased [Unknown]
  - Contusion [Not Recovered/Not Resolved]
